FAERS Safety Report 6970029-8 (Version None)
Quarter: 2010Q3

REPORT INFORMATION
  Report Type: 
  Country: None (occurrence: None)
  Receive Date: 20100908
  Receipt Date: 20100831
  Transmission Date: 20110219
  Serious: Yes (Other)
  Sender: FDA-Public Use
  Company Number: GR-NOVOPROD-314267

PATIENT
  Sex: Male

DRUGS (2)
  1. NOVOMIX 30 FLEXPEN [Suspect]
     Indication: DIABETES MELLITUS
  2. MIRCERA [Concomitant]
     Indication: RENAL FAILURE

REACTIONS (3)
  - DROOLING [None]
  - LOSS OF CONSCIOUSNESS [None]
  - PRODUCT COLOUR ISSUE [None]
